FAERS Safety Report 6099047-1 (Version None)
Quarter: 2009Q1

REPORT INFORMATION
  Report Type: 
  Country: None (occurrence: None)
  Receive Date: 20090302
  Receipt Date: 20090224
  Transmission Date: 20090719
  Serious: Yes (Hospitalization, Disabling)
  Sender: FDA-Public Use
  Company Number: GB-BRISTOL-MYERS SQUIBB COMPANY-14522379

PATIENT
  Age: 84 Year
  Sex: Female

DRUGS (2)
  1. HYDREA [Suspect]
     Indication: THROMBOCYTHAEMIA
     Dosage: 1CAP/D FOR 4 DAYS AND 2CAPSULES PER DAY FOR THE OTHER 3DAYS OF THE WEEK.
  2. ASPIRIN [Concomitant]

REACTIONS (4)
  - DYSPNOEA [None]
  - OEDEMA PERIPHERAL [None]
  - PALPITATIONS [None]
  - THROMBOSIS [None]
